FAERS Safety Report 15114378 (Version 27)
Quarter: 2022Q2

REPORT INFORMATION
  Report Type: Other
  Country: DE (occurrence: None)
  Receive Date: 20180706
  Receipt Date: 20220623
  Transmission Date: 20220721
  Serious: Yes (Hospitalization, Other)
  Sender: FDA-Public Use
  Company Number: DE-ROCHE-2107689

PATIENT
  Age: 46 Year
  Sex: Female

DRUGS (12)
  1. OCREVUS [Suspect]
     Active Substance: OCRELIZUMAB
     Indication: Relapsing-remitting multiple sclerosis
     Dosage: SECOND INFUSION 04/APR/2018
     Route: 042
     Dates: start: 20180321
  2. OCREVUS [Suspect]
     Active Substance: OCRELIZUMAB
     Route: 042
     Dates: start: 20181109
  3. OCREVUS [Suspect]
     Active Substance: OCRELIZUMAB
     Route: 042
     Dates: start: 20181109
  4. OCREVUS [Suspect]
     Active Substance: OCRELIZUMAB
     Route: 042
     Dates: start: 20201014
  5. OCREVUS [Suspect]
     Active Substance: OCRELIZUMAB
     Dosage: 5TH MAINTENANCE DOSE
     Route: 042
     Dates: start: 20210422
  6. COMIRNATY [Suspect]
     Active Substance: TOZINAMERAN
     Indication: COVID-19 immunisation
     Dosage: FIRST DOSE OF VACCINATION
     Route: 065
     Dates: start: 20210810
  7. CORTISONE ACETATE [Suspect]
     Active Substance: CORTISONE ACETATE
     Indication: Premedication
     Route: 065
  8. CORTISONE ACETATE [Suspect]
     Active Substance: CORTISONE ACETATE
     Dosage: BEFORE FIRST MAINTENANCE DOSE
     Route: 042
     Dates: start: 20181109
  9. CORTISONE ACETATE [Suspect]
     Active Substance: CORTISONE ACETATE
     Dosage: 4TH CORTISONE DOSE
     Route: 065
     Dates: start: 20190216
  10. VESIKUR [Concomitant]
     Active Substance: SOLIFENACIN SUCCINATE
  11. BACLOFEN [Concomitant]
     Active Substance: BACLOFEN
  12. LYRICA [Concomitant]
     Active Substance: PREGABALIN
     Dosage: 75 MG - 0 - 100 MG

REACTIONS (30)
  - Multiple sclerosis [Not Recovered/Not Resolved]
  - Pain [Recovered/Resolved]
  - Multiple sclerosis relapse [Not Recovered/Not Resolved]
  - Arrhythmia [Recovered/Resolved]
  - Haemorrhage [Recovered/Resolved]
  - Uterine inflammation [Recovered/Resolved]
  - Gastrointestinal infection [Recovered/Resolved]
  - Pyrexia [Recovered/Resolved]
  - Dizziness [Not Recovered/Not Resolved]
  - Fatigue [Not Recovered/Not Resolved]
  - Increased upper airway secretion [Recovered/Resolved]
  - Dysphonia [Recovered/Resolved]
  - Cough [Recovered/Resolved]
  - Herpes zoster [Recovered/Resolved]
  - Oropharyngeal pain [Recovered/Resolved]
  - Urinary tract infection [Recovered/Resolved]
  - Fall [Unknown]
  - Bone contusion [Recovered/Resolved]
  - Oropharyngeal discomfort [Recovered/Resolved]
  - Eczema [Not Recovered/Not Resolved]
  - Infusion related reaction [Recovered/Resolved]
  - Blood pressure increased [Recovered/Resolved]
  - Muscle spasticity [Not Recovered/Not Resolved]
  - Headache [Not Recovered/Not Resolved]
  - Vomiting [Not Recovered/Not Resolved]
  - Increased upper airway secretion [Recovered/Resolved]
  - Pain in extremity [Recovered/Resolved]
  - Fatigue [Recovered/Resolved]
  - Pyrexia [Recovered/Resolved]
  - Muscle spasticity [Not Recovered/Not Resolved]

NARRATIVE: CASE EVENT DATE: 20180321
